FAERS Safety Report 18998259 (Version 1)
Quarter: 2021Q1

REPORT INFORMATION
  Report Type: Spontaneous
  Country: AU (occurrence: AU)
  Receive Date: 20210311
  Receipt Date: 20210311
  Transmission Date: 20210420
  Serious: Yes (Death, Hospitalization)
  Sender: FDA-Public Use
  Company Number: AU-ASTRAZENECA-2021A114651

PATIENT
  Age: 73 Year
  Sex: Female

DRUGS (2)
  1. SEROQUEL [Suspect]
     Active Substance: QUETIAPINE FUMARATE
     Indication: PRODUCT USED FOR UNKNOWN INDICATION
     Route: 065
  2. MOVAPO [Suspect]
     Active Substance: APOMORPHINE HYDROCHLORIDE
     Indication: PARKINSON^S DISEASE
     Route: 065
     Dates: start: 201607

REACTIONS (6)
  - Dysarthria [Unknown]
  - Death [Fatal]
  - Blood pressure decreased [Recovered/Resolved]
  - Confusional state [Unknown]
  - Sedation [Unknown]
  - Feeling abnormal [Unknown]
